FAERS Safety Report 8941118 (Version 1)
Quarter: 2012Q4

REPORT INFORMATION
  Report Type: 
  Country: GR (occurrence: GR)
  Receive Date: 20121203
  Receipt Date: 20121203
  Transmission Date: 20130627
  Serious: Yes (Hospitalization)
  Sender: FDA-Public Use
  Company Number: GR-ROXANE LABORATORIES, INC.-2012-RO-02473RO

PATIENT
  Age: 51 Year
  Sex: Male

DRUGS (2)
  1. QUETIAPINE FUMARATE [Suspect]
     Indication: SCHIZOPHRENIA
     Dosage: 1200 mg
  2. RISPERIDONE [Suspect]
     Indication: SCHIZOPHRENIA
     Dosage: 8 mg

REACTIONS (2)
  - Tardive dyskinesia [Not Recovered/Not Resolved]
  - Schizophrenia [Unknown]
